FAERS Safety Report 20694995 (Version 3)
Quarter: 2022Q3

REPORT INFORMATION
  Report Type: Spontaneous
  Country: FR (occurrence: FR)
  Receive Date: 20220411
  Receipt Date: 20220916
  Transmission Date: 20221026
  Serious: Yes (Hospitalization, Other)
  Sender: FDA-Public Use
  Company Number: None

PATIENT
  Age: 76 Year
  Sex: Male
  Weight: 67 kg

DRUGS (15)
  1. PHLOROGLUCINOL [Suspect]
     Active Substance: PHLOROGLUCINOL
     Indication: Pain
     Dosage: 480 MILLIGRAM DAILY; IF NECESSARY, 480MG, FREQUENCY TIME 1DAYS, DURATION 71DAYS
     Route: 048
     Dates: start: 20211229, end: 20220310
  2. TRAMADOL HYDROCHLORIDE [Suspect]
     Active Substance: TRAMADOL HYDROCHLORIDE
     Indication: Pain
     Dosage: 200 MILLIGRAM DAILY; IF NECESSARY, 200MG, FREQUENCY TIME 1DAYS, DURATION 71DAYS
     Route: 048
     Dates: start: 20211229, end: 20220310
  3. ONDANSETRON [Suspect]
     Active Substance: ONDANSETRON
     Indication: Nausea
     Dosage: 80MG, FREQUENCY TIME 1CYCLICAL, DURATION 66DAYS
     Route: 048
     Dates: start: 20211229, end: 20220305
  4. EMEND [Suspect]
     Active Substance: APREPITANT
     Indication: Nausea
     Dosage: 285MG, FREQUENCY TIME 1CYCLICAL, DURATION 64DAYS
     Route: 048
     Dates: start: 20211229, end: 20220303
  5. POLARAMINE [Suspect]
     Active Substance: DEXCHLORPHENIRAMINE MALEATE
     Indication: Allergy prophylaxis
     Dosage: STRENGTH: 5 MG/1 ML, 5MG, FREQUENCY TIME 1CYCLICAL, DURATION 62DAYS
     Route: 042
     Dates: start: 20211229, end: 20220301
  6. ADCETRIS [Suspect]
     Active Substance: BRENTUXIMAB VEDOTIN
     Indication: Hodgkin^s disease
     Dosage: 117MG, FREQUENCY TIME 1CYCLICAL, DURATION 62DAYS
     Route: 042
     Dates: start: 20211229, end: 20220301
  7. BACTRIM [Suspect]
     Active Substance: SULFAMETHOXAZOLE\TRIMETHOPRIM
     Indication: Infection prophylaxis
     Dosage: L-MER-V,800MG/160MG,1DF, FREQUENCY TIME 3WEEKS, DURATION 71DAYS
     Route: 048
     Dates: start: 20211229, end: 20220310
  8. ACETAMINOPHEN [Suspect]
     Active Substance: ACETAMINOPHEN
     Indication: Nausea
     Dosage: 80MG, FREQUENCY TIME 1CYCLICAL,DURATION 66DAYS
     Route: 048
     Dates: start: 20211229, end: 20220305
  9. METOCLOPRAMIDE [Suspect]
     Active Substance: METOCLOPRAMIDE
     Indication: Nausea
     Dosage: 30 MILLIGRAM DAILY; 30MG, FREQUENCY TIME 1DAYS, DURATION 71DAYS
     Route: 048
     Dates: start: 20211229, end: 20220310
  10. FILGRASTIM [Suspect]
     Active Substance: FILGRASTIM
     Indication: Neutropenia
     Dosage: 150MU, ZARZIO 30 MU/0.5 ML, SOLUTION FOR INJECTION OR INFUSION IN PRE-FILLED SYRINGE,FREQUENCY TIME
     Route: 058
     Dates: start: 20211229, end: 20220310
  11. BENDAMUSTINE [Suspect]
     Active Substance: BENDAMUSTINE
     Indication: Hodgkin^s disease
     Dosage: UNIT DOSE : 330 MG , FREQUENCY TIME : 1 CYCLICAL , DURATION : 63 DAYS
     Dates: start: 20211229, end: 20220302
  12. XARELTO [Concomitant]
     Active Substance: RIVAROXABAN
     Indication: Product used for unknown indication
     Route: 065
  13. VALACYCLOVIR HYDROCHLORIDE [Concomitant]
     Active Substance: VALACYCLOVIR HYDROCHLORIDE
     Indication: Product used for unknown indication
  14. BISOPROLOL FUMARATE [Concomitant]
     Active Substance: BISOPROLOL FUMARATE
     Indication: Product used for unknown indication
  15. LEUCOVORIN CALCIUM [Concomitant]
     Active Substance: LEUCOVORIN CALCIUM
     Indication: Product used for unknown indication

REACTIONS (3)
  - Palmar-plantar erythrodysaesthesia syndrome [Recovering/Resolving]
  - Erythema [Recovered/Resolved]
  - Acute kidney injury [Recovered/Resolved]

NARRATIVE: CASE EVENT DATE: 20220201
